FAERS Safety Report 12006547 (Version 2)
Quarter: 2016Q1

REPORT INFORMATION
  Report Type: Spontaneous
  Country: US (occurrence: US)
  Receive Date: 20160204
  Receipt Date: 20160204
  Transmission Date: 20160526
  Serious: No
  Sender: FDA-Public Use
  Company Number: ALCN2016US000968

PATIENT
  Sex: Female

DRUGS (1)
  1. BRIMONIDINE [Suspect]
     Active Substance: BRIMONIDINE TARTRATE
     Indication: OPTIC NERVE DISORDER
     Dosage: 1 GTT, BID
     Route: 047
     Dates: start: 201212

REACTIONS (2)
  - Somnolence [Unknown]
  - Vision blurred [Unknown]

NARRATIVE: CASE EVENT DATE: 20150614
